FAERS Safety Report 6943847-X (Version None)
Quarter: 2010Q3

REPORT INFORMATION
  Report Type: 
  Country: None (occurrence: None)
  Receive Date: 20100826
  Receipt Date: 20100820
  Transmission Date: 20110219
  Serious: Yes (Hospitalization)
  Sender: FDA-Public Use
  Company Number: A0874047A

PATIENT
  Age: 64 Year
  Sex: Female

DRUGS (10)
  1. PAXIL [Suspect]
     Indication: DEPRESSION
     Dosage: 25MG PER DAY
     Route: 048
     Dates: start: 20080101, end: 20100806
  2. VALTREX [Suspect]
     Indication: GENITAL HERPES
     Route: 048
     Dates: start: 19850101, end: 20100717
  3. MULTIPLE MEDICATIONS [Suspect]
     Indication: PRODUCT USED FOR UNKNOWN INDICATION
     Route: 048
     Dates: start: 20100717
  4. DIOVAN [Concomitant]
  5. HUMULIN R [Concomitant]
  6. LOVASTATIN [Concomitant]
  7. GEODON [Concomitant]
  8. NAPROXEN [Concomitant]
  9. TRAZODONE HCL [Concomitant]
  10. LAMICTAL [Concomitant]

REACTIONS (28)
  - BLOOD GLUCOSE DECREASED [None]
  - CEREBROVASCULAR ACCIDENT [None]
  - CONVULSION [None]
  - DEPRESSION [None]
  - DRUG INEFFECTIVE [None]
  - DRUG INTERACTION [None]
  - FATIGUE [None]
  - GAIT DISTURBANCE [None]
  - GASTROINTESTINAL DISORDER [None]
  - HIATUS HERNIA [None]
  - HYPERTENSION [None]
  - INSOMNIA [None]
  - INTENTIONAL OVERDOSE [None]
  - IRRITABILITY [None]
  - LOSS OF CONSCIOUSNESS [None]
  - MOOD ALTERED [None]
  - MOOD SWINGS [None]
  - MYALGIA [None]
  - NAUSEA [None]
  - PANIC ATTACK [None]
  - RASH [None]
  - ROAD TRAFFIC ACCIDENT [None]
  - SOMNOLENCE [None]
  - SPEECH DISORDER [None]
  - SUICIDAL IDEATION [None]
  - SUICIDE ATTEMPT [None]
  - ULCER [None]
  - VOMITING [None]
